FAERS Safety Report 24904300 (Version 2)
Quarter: 2025Q1

REPORT INFORMATION
  Report Type: Spontaneous
  Country: US (occurrence: US)
  Receive Date: 20250130
  Receipt Date: 20250312
  Transmission Date: 20250408
  Serious: No
  Sender: SUNOVION
  Company Number: US-SMPA-2025SPA000768AA

PATIENT

DRUGS (2)
  1. ORGOVYX [Suspect]
     Active Substance: RELUGOLIX
     Indication: Prostate cancer
     Route: 048
     Dates: start: 20221214, end: 20221214
  2. ORGOVYX [Suspect]
     Active Substance: RELUGOLIX
     Dosage: 120 MG, QD
     Route: 048
     Dates: start: 20221215

REACTIONS (7)
  - Dizziness postural [Unknown]
  - Pollakiuria [Unknown]
  - Night sweats [Unknown]
  - Somnolence [Unknown]
  - Hot flush [Unknown]
  - Insomnia [Unknown]
  - Hyperhidrosis [Unknown]
